FAERS Safety Report 13815956 (Version 1)
Quarter: 2017Q3

REPORT INFORMATION
  Report Type: Spontaneous
  Country: US (occurrence: US)
  Receive Date: 20170731
  Receipt Date: 20170731
  Transmission Date: 20171127
  Serious: No
  Sender: FDA-Public Use
  Company Number: US-SA-2016SA162394

PATIENT
  Age: 62 Year
  Sex: Male
  Weight: 72 kg

DRUGS (3)
  1. NEXIUM [Interacting]
     Active Substance: ESOMEPRAZOLE MAGNESIUM
     Route: 065
  2. AMBIEN [Interacting]
     Active Substance: ZOLPIDEM TARTRATE
     Indication: INSOMNIA
     Dosage: DOSE AND NUMBER OF DOSES USD PER DAY WAS 5-10 MG (ONCE)
     Route: 065
  3. AMBIEN [Suspect]
     Active Substance: ZOLPIDEM TARTRATE
     Indication: SLEEP DISORDER
     Dosage: DOSE AND NUMBER OF DOSES USD PER DAY WAS 5-10 MG (ONCE)
     Route: 065

REACTIONS (3)
  - Drug interaction [Unknown]
  - Intentional product misuse [Unknown]
  - Drug ineffective [Unknown]
